FAERS Safety Report 8291459-0 (Version None)
Quarter: 2012Q2

REPORT INFORMATION
  Report Type: 
  Country: None (occurrence: None)
  Receive Date: 20120417
  Receipt Date: 20120410
  Transmission Date: 20120825
  Serious: Yes (Other)
  Sender: FDA-Public Use
  Company Number: JP-PFIZER INC-2012025187

PATIENT
  Age: 62 Year
  Sex: Female
  Weight: 47 kg

DRUGS (6)
  1. AZUCURENIN S [Concomitant]
     Dosage: 1.5 G/DAY
     Dates: end: 20110803
  2. MUCODYNE [Concomitant]
     Dosage: 1500 MG/DAY
     Dates: start: 20110627, end: 20110704
  3. ZYVOX [Suspect]
     Indication: SEPSIS
     Dosage: 600 MG, 2X/DAY
     Route: 041
     Dates: start: 20110629
  4. WARFARIN SODIUM [Suspect]
     Dosage: 2 MG/DAY
     Route: 048
     Dates: start: 20110609
  5. LASIX [Concomitant]
     Dosage: 20 MG/DAY
     Dates: start: 20110629, end: 20110708
  6. WARFARIN SODIUM [Suspect]
     Dosage: 2.5 MG/DAY
     Route: 048
     Dates: start: 20110621

REACTIONS (1)
  - INTERNATIONAL NORMALISED RATIO INCREASED [None]
